FAERS Safety Report 4935907-X (Version None)
Quarter: 2006Q1

REPORT INFORMATION
  Report Type: 
  Country: None (occurrence: None)
  Receive Date: 20060302
  Receipt Date: 20060208
  Transmission Date: 20060701
  Serious: Yes (Hospitalization)
  Sender: FDA-Public Use
  Company Number: US200602001069

PATIENT
  Sex: Female

DRUGS (2)
  1. FORTEO [Suspect]
     Indication: OSTEOPOROSIS
     Dates: start: 20050901, end: 20060127
  2. FORTEO PEN (FORTEO PEN) PEN, DISPOSABLE [Concomitant]

REACTIONS (3)
  - DYSPNOEA [None]
  - ENDARTERECTOMY [None]
  - SCAR [None]
